FAERS Safety Report 15831288 (Version 1)
Quarter: 2019Q1

REPORT INFORMATION
  Report Type: Spontaneous
  Country: US (occurrence: US)
  Receive Date: 20190116
  Receipt Date: 20190116
  Transmission Date: 20190417
  Serious: Yes (Other)
  Sender: FDA-Public Use
  Company Number: US-SA-2019SA007508

PATIENT
  Age: 48 Year
  Sex: Male

DRUGS (1)
  1. ICY HOT [Suspect]
     Active Substance: MENTHOL\METHYL SALICYLATE

REACTIONS (3)
  - Traumatic haemorrhage [Unknown]
  - Product package associated injury [Unknown]
  - Pain [Unknown]
